FAERS Safety Report 8581546-1 (Version None)
Quarter: 2012Q3

REPORT INFORMATION
  Report Type: 
  Country: None (occurrence: None)
  Receive Date: 20120809
  Receipt Date: 20120321
  Transmission Date: 20120928
  Serious: No
  Sender: FDA-Public Use
  Company Number: US-MUTUAL PHARMACEUTICAL COMPANY, INC.-DXCY20120003

PATIENT
  Sex: Female
  Weight: 49.032 kg

DRUGS (2)
  1. CLARITHROMYCIN [Suspect]
     Indication: MYCOBACTERIUM CHELONAE INFECTION
     Route: 048
     Dates: start: 20120101
  2. DOXYCYCLINE HYCLATE [Suspect]
     Indication: MYCOBACTERIUM CHELONAE INFECTION
     Route: 048
     Dates: start: 20120101

REACTIONS (2)
  - TOOTH DISCOLOURATION [None]
  - OFF LABEL USE [None]
